FAERS Safety Report 20148728 (Version 1)
Quarter: 2021Q4

REPORT INFORMATION
  Report Type: Report from Study
  Country: CA (occurrence: CA)
  Receive Date: 20211204
  Receipt Date: 20211204
  Transmission Date: 20220303
  Serious: Yes (Other)
  Sender: FDA-Public Use
  Company Number: CA-SA-SAC20211129001766

PATIENT
  Age: 60 Year
  Sex: Female

DRUGS (8)
  1. TERIFLUNOMIDE [Suspect]
     Active Substance: TERIFLUNOMIDE
     Indication: Relapsing-remitting multiple sclerosis
     Dosage: 14 MG, QD
     Route: 048
     Dates: start: 20171030
  2. NAPROXEN [Concomitant]
     Active Substance: NAPROXEN
     Dosage: 250 MG, BID
  3. EPIPEN [Concomitant]
     Active Substance: EPINEPHRINE
  4. PERINDOPRIL ERBUMINE [Concomitant]
     Active Substance: PERINDOPRIL ERBUMINE
     Dosage: 4 MG, HS
  5. MIRABEGRON [Concomitant]
     Active Substance: MIRABEGRON
  6. VITAMIN D NOS [Concomitant]
     Active Substance: VITAMIN D NOS
     Dosage: 4000 IU
  7. BIOTIN [Concomitant]
     Active Substance: BIOTIN
  8. MINERALS\VITAMINS [Concomitant]
     Active Substance: MINERALS\VITAMINS

REACTIONS (1)
  - Gastric ulcer [Recovered/Resolved]
